FAERS Safety Report 4645768-4 (Version None)
Quarter: 2005Q2

REPORT INFORMATION
  Report Type: 
  Country: None (occurrence: None)
  Receive Date: 20050425
  Receipt Date: 20050413
  Transmission Date: 20051028
  Serious: Yes (Hospitalization)
  Sender: FDA-Public Use
  Company Number: 2005059250

PATIENT
  Sex: Male

DRUGS (7)
  1. DOSTINEX [Suspect]
     Indication: PROLACTINOMA
     Dosage: 0.5 MG (0.5 MG, DAILY INTERVAL: EVERY DAY), ORAL
     Route: 048
  2. ROSIGLITAZONE (ROSIGLITAZONE) [Concomitant]
  3. FELODIPINE [Concomitant]
  4. RAMIPRIL [Concomitant]
  5. DYAZIDE [Concomitant]
  6. METOPROLOL TARTRATE [Concomitant]
  7. ESOMEPRAZOLE (ESOMEPRAZOLE) [Concomitant]

REACTIONS (2)
  - PITUITARY TUMOUR [None]
  - PSYCHOTIC DISORDER [None]
